FAERS Safety Report 16200068 (Version 2)
Quarter: 2019Q3

REPORT INFORMATION
  Report Type: Spontaneous
  Country: US (occurrence: US)
  Receive Date: 20190415
  Receipt Date: 20190822
  Transmission Date: 20191004
  Serious: Yes (Other)
  Sender: FDA-Public Use
  Company Number: US-SA-2019SA100535

PATIENT
  Age: 52 Year
  Sex: Female
  Weight: 50.8 kg

DRUGS (5)
  1. ANASTROZOLE. [Concomitant]
     Active Substance: ANASTROZOLE
     Dosage: UNK
     Dates: start: 20130104
  2. PARAPLATIN [Concomitant]
     Active Substance: CARBOPLATIN
     Indication: BREAST CANCER FEMALE
     Dosage: UNK
  3. TAXOTERE [Suspect]
     Active Substance: DOCETAXEL
     Indication: BREAST CANCER FEMALE
     Dosage: 112 MG, UNK
     Route: 042
     Dates: start: 20121212, end: 20121212
  4. TAXOTERE [Suspect]
     Active Substance: DOCETAXEL
     Dosage: 112 MG, UNK
     Route: 042
     Dates: start: 20130327, end: 20130327
  5. HERCEPTIN [Concomitant]
     Active Substance: TRASTUZUMAB
     Indication: BREAST CANCER FEMALE
     Dosage: UNK

REACTIONS (6)
  - Emotional distress [Unknown]
  - Impaired quality of life [Unknown]
  - Anxiety [Unknown]
  - Psychological trauma [Unknown]
  - Pain [Unknown]
  - Alopecia [Recovering/Resolving]

NARRATIVE: CASE EVENT DATE: 20130112
